FAERS Safety Report 5704583-0 (Version None)
Quarter: 2008Q2

REPORT INFORMATION
  Report Type: 
  Country: None (occurrence: None)
  Receive Date: 20080411
  Receipt Date: 20080411
  Transmission Date: 20081010
  Serious: Yes (Hospitalization)
  Sender: FDA-Public Use
  Company Number: None

PATIENT
  Sex: Male
  Weight: 2.5 kg

DRUGS (2)
  1. CAFFEINE CITRATE [Suspect]
     Dosage: 100MG ONCE IV BOLUS
     Route: 040
     Dates: start: 20080328, end: 20080328
  2. CAFFEINE SODIUM BENZOATE DISPENS  125MG/ML [Suspect]
     Dosage: 625MG ONCE IV BOLUS
     Route: 040

REACTIONS (2)
  - OVERDOSE [None]
  - WRONG DRUG ADMINISTERED [None]
